FAERS Safety Report 6638700-5 (Version None)
Quarter: 2010Q1

REPORT INFORMATION
  Report Type: 
  Country: None (occurrence: None)
  Receive Date: 20100312
  Receipt Date: 20100305
  Transmission Date: 20100710
  Serious: Yes (Hospitalization)
  Sender: FDA-Public Use
  Company Number: 008395

PATIENT
  Sex: Female
  Weight: 82 kg

DRUGS (5)
  1. CERTOLIZUMAB PEGOL (CERTLIZUMAB PEGOL) [Suspect]
     Indication: CROHN'S DISEASE
     Dosage: SEE IMAGE
     Route: 058
     Dates: start: 20090821, end: 20090918
  2. MEDROL [Concomitant]
  3. DAFALGAN [Concomitant]
  4. MORPHINE [Concomitant]
  5. CALCI CHEW [Concomitant]

REACTIONS (4)
  - CROHN'S DISEASE [None]
  - FISTULA [None]
  - INFLAMMATION [None]
  - INTESTINAL ANASTOMOSIS [None]
